FAERS Safety Report 8018454-0 (Version None)
Quarter: 2012Q1

REPORT INFORMATION
  Report Type: 
  Country: None (occurrence: None)
  Receive Date: 20120103
  Receipt Date: 20111225
  Transmission Date: 20120608
  Serious: Yes (Other)
  Sender: FDA-Public Use
  Company Number: DE-BAYER-2011-114791

PATIENT
  Sex: Female

DRUGS (1)
  1. YASMIN [Suspect]
     Dosage: 1 DF, QD
     Route: 048
     Dates: start: 20100101

REACTIONS (3)
  - ECTOPIC PREGNANCY [None]
  - VOMITING [None]
  - MATERNAL EXPOSURE DURING PREGNANCY [None]
